FAERS Safety Report 7912672-5 (Version None)
Quarter: 2011Q4

REPORT INFORMATION
  Report Type: 
  Country: None (occurrence: None)
  Receive Date: 20111114
  Receipt Date: 20110802
  Transmission Date: 20120403
  Serious: No
  Sender: FDA-Public Use
  Company Number: US-BAYER-2011-077320

PATIENT
  Age: 62 Year
  Sex: Male

DRUGS (2)
  1. OTHER MEDICINE [Concomitant]
  2. ALEVE (CAPLET) [Suspect]
     Indication: ARTHRITIS
     Dosage: 1 DF, QD
     Route: 048

REACTIONS (1)
  - ARTHRITIS [None]
